FAERS Safety Report 8574454-3 (Version None)
Quarter: 2012Q3

REPORT INFORMATION
  Report Type: 
  Country: None (occurrence: None)
  Receive Date: 20120806
  Receipt Date: 20120724
  Transmission Date: 20120928
  Serious: No
  Sender: FDA-Public Use
  Company Number: US-ABBOTT-12P-163-0959741-00

PATIENT
  Sex: Female
  Weight: 47.216 kg

DRUGS (6)
  1. DEPAKOTE ER [Suspect]
     Indication: MOOD ALTERED
     Dosage: AT BEDTIME
     Route: 048
     Dates: start: 20120703, end: 20120720
  2. TYLENOL (CAPLET) [Concomitant]
     Indication: PRODUCT USED FOR UNKNOWN INDICATION
  3. MULTI-VITAMIN [Concomitant]
     Indication: PRODUCT USED FOR UNKNOWN INDICATION
  4. NAPROXEN [Concomitant]
     Indication: PAIN IN JAW
  5. OLANZAPINE [Concomitant]
     Indication: AGITATION
  6. HYDROXYZINE [Concomitant]
     Indication: ANXIETY

REACTIONS (1)
  - HEPATIC ENZYME INCREASED [None]
